FAERS Safety Report 5105560-3 (Version None)
Quarter: 2006Q3

REPORT INFORMATION
  Report Type: 
  Country: None (occurrence: None)
  Receive Date: 20060915
  Receipt Date: 20060905
  Transmission Date: 20061208
  Serious: Yes (Death)
  Sender: FDA-Public Use
  Company Number: US-JNJFOC-20060901845

PATIENT
  Age: 28 Year
  Sex: Male

DRUGS (4)
  1. ACETAMINOPHEN AND OXYCODONE HCL [Suspect]
     Indication: DRUG USE FOR UNKNOWN INDICATION
     Route: 048
  2. DEXTROMETHORPHAN HYDROBROMIDE [Suspect]
     Indication: DRUG USE FOR UNKNOWN INDICATION
  3. DOXYLAMINE [Suspect]
     Indication: DRUG USE FOR UNKNOWN INDICATION
  4. METHAMPHETAMINE HYDROCHLORIDE [Suspect]
     Indication: DRUG USE FOR UNKNOWN INDICATION

REACTIONS (24)
  - AGGRESSION [None]
  - ALANINE AMINOTRANSFERASE INCREASED [None]
  - ASPARTATE AMINOTRANSFERASE INCREASED [None]
  - BLOOD CREATINE PHOSPHOKINASE INCREASED [None]
  - BLOOD GLUCOSE INCREASED [None]
  - BLOOD PH DECREASED [None]
  - BLOOD SODIUM INCREASED [None]
  - COMPLETED SUICIDE [None]
  - DIFFICULT TO WEAN FROM VENTILATOR [None]
  - DISORIENTATION [None]
  - DRUG ABUSER [None]
  - DRUG SCREEN POSITIVE [None]
  - FACE OEDEMA [None]
  - GASTROINTESTINAL HAEMORRHAGE [None]
  - GENERAL PHYSICAL HEALTH DETERIORATION [None]
  - HAEMODIALYSIS [None]
  - HYPOTENSION [None]
  - MULTIPLE DRUG OVERDOSE INTENTIONAL [None]
  - OEDEMA PERIPHERAL [None]
  - RENAL FAILURE [None]
  - RESPIRATORY RATE INCREASED [None]
  - TACHYCARDIA [None]
  - TROPONIN INCREASED [None]
  - WHITE BLOOD CELL COUNT INCREASED [None]
